FAERS Safety Report 26119733 (Version 1)
Quarter: 2025Q4

REPORT INFORMATION
  Report Type: Spontaneous
  Country: GB (occurrence: None)
  Receive Date: 20251204
  Receipt Date: 20251204
  Transmission Date: 20260118
  Serious: Yes (Hospitalization, Disabling, Other)
  Sender: Alvotech
  Company Number: None

PATIENT
  Age: 42 Year
  Sex: Male
  Weight: 79 kg

DRUGS (6)
  1. USTEKINUMAB [Suspect]
     Active Substance: USTEKINUMAB
     Indication: Product used for unknown indication
     Route: 042
     Dates: start: 20250721
  2. MIRTAZAPINE [Concomitant]
     Active Substance: MIRTAZAPINE
  3. PREDNISOLONE [Concomitant]
     Active Substance: PREDNISOLONE
     Indication: Crohn^s disease
  4. OMEPRAZOLE [Concomitant]
     Active Substance: OMEPRAZOLE
  5. CYCLIZINE [Concomitant]
     Active Substance: CYCLIZINE
  6. USTEKINUMAB [Suspect]
     Active Substance: USTEKINUMAB
     Indication: Product used for unknown indication
     Route: 058
     Dates: start: 20250915

REACTIONS (1)
  - Neuropathy peripheral [Unknown]

NARRATIVE: CASE EVENT DATE: 20251020
